FAERS Safety Report 15246997 (Version 2)
Quarter: 2018Q3

REPORT INFORMATION
  Report Type: Spontaneous
  Country: DE (occurrence: DE)
  Receive Date: 20180806
  Receipt Date: 20180810
  Transmission Date: 20181010
  Serious: Yes (Death, Other)
  Sender: FDA-Public Use
  Company Number: DE-REGENERON PHARMACEUTICALS, INC.-2018-32375

PATIENT

DRUGS (1)
  1. EYLEA [Suspect]
     Active Substance: AFLIBERCEPT
     Indication: NEOVASCULAR AGE-RELATED MACULAR DEGENERATION
     Dosage: INJECTION INTO UNKNOWN EYE; DOSE, FREQUENCY AND TOTAL NUMBER OF DOSES UNKNOWN
     Route: 031
     Dates: start: 20180703

REACTIONS (2)
  - Cerebrovascular accident [Fatal]
  - Multiple use of single-use product [Unknown]

NARRATIVE: CASE EVENT DATE: 20180703
